FAERS Safety Report 21203038 (Version 1)
Quarter: 2022Q3

REPORT INFORMATION
  Report Type: Spontaneous
  Country: US (occurrence: US)
  Receive Date: 20220811
  Receipt Date: 20220811
  Transmission Date: 20221026
  Serious: No
  Sender: FDA-Public Use
  Company Number: US-OTSUKA-2021_038304

PATIENT
  Age: 60 Year
  Sex: Female

DRUGS (3)
  1. REXULTI [Suspect]
     Active Substance: BREXPIPRAZOLE
     Indication: Depression
     Dosage: 0.5 MG
     Route: 065
  2. REXULTI [Suspect]
     Active Substance: BREXPIPRAZOLE
     Dosage: 1 MG
     Route: 065
  3. PRISTIQ EXTENDED-RELEASE [Concomitant]
     Active Substance: DESVENLAFAXINE SUCCINATE
     Indication: Product used for unknown indication
     Dosage: UNK
     Route: 065

REACTIONS (6)
  - Depressed mood [Not Recovered/Not Resolved]
  - Stress [Not Recovered/Not Resolved]
  - Intrusive thoughts [Unknown]
  - Nightmare [Not Recovered/Not Resolved]
  - Heart rate increased [Not Recovered/Not Resolved]
  - Job dissatisfaction [Unknown]

NARRATIVE: CASE EVENT DATE: 20211027
